FAERS Safety Report 5255481-0 (Version None)
Quarter: 2007Q1

REPORT INFORMATION
  Report Type: 
  Country: None (occurrence: None)
  Receive Date: 20061201
  Receipt Date: 20060902
  Transmission Date: 20070707
  Serious: No
  Sender: FDA-Public Use
  Company Number: 2006PV020577

PATIENT
  Age: 81 Year
  Weight: 117.9352 kg

DRUGS (4)
  1. BYETTA [Suspect]
     Indication: DIABETES MELLITUS NON-INSULIN-DEPENDENT
     Dosage: 5 MCG;BID;SC
     Route: 058
     Dates: start: 20060810
  2. LUPRON [Suspect]
     Indication: PROSTATE CANCER
  3. GLIMEPIRIDE [Concomitant]
  4. ACTOS [Concomitant]

REACTIONS (1)
  - CANCER PAIN [None]
